FAERS Safety Report 22218579 (Version 1)
Quarter: 2023Q2

REPORT INFORMATION
  Report Type: Spontaneous
  Country: US (occurrence: US)
  Receive Date: 20230417
  Receipt Date: 20230417
  Transmission Date: 20230722
  Serious: Yes (Hospitalization)
  Sender: FDA-Public Use
  Company Number: US-MYLANLABS-2023M1039755

PATIENT
  Age: 56 Year
  Sex: Female

DRUGS (19)
  1. FLUDARABINE [Suspect]
     Active Substance: FLUDARABINE PHOSPHATE
     Indication: Immunosuppressant drug therapy
     Dosage: UNK, RECEIVED UNDER CONDITIONING REGIMEN
     Route: 065
     Dates: start: 201905
  2. MELPHALAN [Suspect]
     Active Substance: MELPHALAN
     Indication: Immunosuppressant drug therapy
     Dosage: UNK, RECEIVED UNDER CONDITIONING REGIMEN
     Route: 065
     Dates: start: 201905
  3. TACROLIMUS [Suspect]
     Active Substance: TACROLIMUS
     Indication: Prophylaxis against graft versus host disease
     Dosage: UNK, RECEIVED AFTER ALLOGENEIC PERIPHERAL HAEMATOPOIETIC STEM CELL TRANSPLANT
     Route: 065
     Dates: start: 201905
  4. TACROLIMUS [Suspect]
     Active Substance: TACROLIMUS
     Dosage: UNK, THERAPY RESTARTED AFTER DISCONTINUED FOR A SHORT DURATION; DOSE UNKNOWN
     Route: 065
     Dates: start: 2019, end: 201908
  5. PREDNISONE [Suspect]
     Active Substance: PREDNISONE
     Indication: Acute graft versus host disease
     Dosage: 0.5 MILLIGRAM/KILOGRAM, QD
     Route: 065
     Dates: start: 201908
  6. PREDNISONE [Suspect]
     Active Substance: PREDNISONE
     Dosage: 10 MILLIGRAM, QD (TAPERED DOSE)
     Route: 065
     Dates: start: 20190912
  7. ALEMTUZUMAB [Suspect]
     Active Substance: ALEMTUZUMAB
     Indication: Prophylaxis against graft versus host disease
     Dosage: UNK, RECEIVED AFTER ALLOGENEIC PERIPHERAL HAEMATOPOIETIC STEM CELL TRANSPLANT
     Route: 065
     Dates: start: 201905
  8. SIROLIMUS [Suspect]
     Active Substance: SIROLIMUS
     Indication: Prophylaxis against graft versus host disease
     Dosage: UNK, RECEIVED AFTER ALLOGENEIC PERIPHERAL HAEMATOPOIETIC STEM CELL TRANSPLANT
     Route: 065
     Dates: start: 2019
  9. METHYLPREDNISOLONE [Suspect]
     Active Substance: METHYLPREDNISOLONE
     Indication: Acute graft versus host disease
     Dosage: 1.6 MILLIGRAM/KILOGRAM
     Route: 065
     Dates: start: 201908
  10. RITUXIMAB [Suspect]
     Active Substance: RITUXIMAB
     Indication: Evidence based treatment
     Dosage: UNK
     Route: 042
     Dates: start: 201909, end: 201909
  11. RITUXIMAB [Suspect]
     Active Substance: RITUXIMAB
     Indication: Epstein-Barr viraemia
     Dosage: UNK, THERAPY REINITIATED; DOSE UNKNOWN
     Route: 042
     Dates: start: 2019, end: 2019
  12. LETERMOVIR [Concomitant]
     Active Substance: LETERMOVIR
     Indication: Antiviral prophylaxis
     Dosage: UNK
     Route: 065
  13. SULFAMETHOXAZOLE\TRIMETHOPRIM [Concomitant]
     Active Substance: SULFAMETHOXAZOLE\TRIMETHOPRIM
     Indication: Antibiotic prophylaxis
     Dosage: UNK
     Route: 065
  14. VALACYCLOVIR [Concomitant]
     Active Substance: VALACYCLOVIR HYDROCHLORIDE
     Indication: Antiviral prophylaxis
     Dosage: UNK
     Route: 065
  15. HYDROCORTISONE [Concomitant]
     Active Substance: HYDROCORTISONE
     Indication: Infusion related reaction
     Dosage: UNK
     Route: 065
  16. HYDROCORTISONE [Concomitant]
     Active Substance: HYDROCORTISONE
     Indication: Hypotension
  17. HYDROCORTISONE [Concomitant]
     Active Substance: HYDROCORTISONE
     Indication: Pyrexia
  18. HYDROCORTISONE [Concomitant]
     Active Substance: HYDROCORTISONE
     Indication: Chills
  19. FLUCONAZOLE [Concomitant]
     Active Substance: FLUCONAZOLE
     Indication: Antifungal prophylaxis
     Dosage: UNK
     Route: 065

REACTIONS (4)
  - Post transplant lymphoproliferative disorder [Recovering/Resolving]
  - Septic shock [Recovering/Resolving]
  - Klebsiella infection [Recovering/Resolving]
  - Bacteraemia [Recovering/Resolving]

NARRATIVE: CASE EVENT DATE: 20190101
